FAERS Safety Report 11800162 (Version 2)
Quarter: 2015Q4

REPORT INFORMATION
  Report Type: Spontaneous
  Country: CN (occurrence: CN)
  Receive Date: 20151203
  Receipt Date: 20151223
  Transmission Date: 20160305
  Serious: Yes (Hospitalization, Other)
  Sender: FDA-Public Use
  Company Number: CN-GILEAD-2015-0185862

PATIENT
  Age: 54 Year
  Weight: 50 kg

DRUGS (1)
  1. HEPSERA [Suspect]
     Active Substance: ADEFOVIR DIPIVOXIL
     Indication: CHRONIC HEPATITIS B
     Dosage: 10 MG, UNK
     Route: 065

REACTIONS (15)
  - Hypophosphataemia [Unknown]
  - Pain in extremity [Unknown]
  - Renal atrophy [Unknown]
  - Gout [Unknown]
  - Gait disturbance [Unknown]
  - Renal hypertension [Unknown]
  - Hyaluronic acid increased [Unknown]
  - Hepatic cyst [Unknown]
  - Nephrolithiasis [Unknown]
  - Osteomalacia [Unknown]
  - Bone density decreased [Unknown]
  - Chronic kidney disease [Unknown]
  - Hepatic cirrhosis [Unknown]
  - Prealbumin decreased [Unknown]
  - Calculus prostatic [Unknown]
